FAERS Safety Report 5959540-6 (Version None)
Quarter: 2008Q4

REPORT INFORMATION
  Report Type: 
  Country: None (occurrence: None)
  Receive Date: 20081117
  Receipt Date: 20081029
  Transmission Date: 20090506
  Serious: Yes (Death, Life-Threatening, Hospitalization)
  Sender: FDA-Public Use
  Company Number: DSA_32617_2008

PATIENT
  Sex: Female

DRUGS (5)
  1. LORAZEPAM [Suspect]
     Dosage: 20 MG 1X, NOT THE PRESCRIBED AMOUNT
     Dates: start: 20030109, end: 20080109
  2. LORAZEPAM [Suspect]
     Indication: DRUG USE FOR UNKNOWN INDICATION
     Dosage: 4.5 MG QD ORAL
     Route: 048
     Dates: start: 20080213, end: 20080313
  3. TRIMIN /0042601/ (TRIMIN 0 SULFADIAZINE/TRIMETHOPRIM) (NOT SPECIFIED) [Suspect]
     Dosage: 20 TABLETS NOT THE PRESCRIBED AMOUNT ORAL
     Route: 048
     Dates: start: 20080109, end: 20080109
  4. ALCOHOL (ALCOHOL - ETHANOL) [Suspect]
     Dates: start: 20080109, end: 20080109
  5. FLUOXETINE HYDROCHLORIDE [Suspect]
     Indication: DRUG USE FOR UNKNOWN INDICATION
     Dosage: 60 MG QD ORAL
     Route: 048
     Dates: end: 20080313

REACTIONS (7)
  - ACCIDENTAL DEATH [None]
  - ALCOHOL USE [None]
  - COMPLETED SUICIDE [None]
  - DRUG TOXICITY [None]
  - FALL [None]
  - INTENTIONAL OVERDOSE [None]
  - PARTNER STRESS [None]
